FAERS Safety Report 7394655-X (Version None)
Quarter: 2011Q2

REPORT INFORMATION
  Report Type: 
  Country: None (occurrence: None)
  Receive Date: 20110405
  Receipt Date: 20101108
  Transmission Date: 20111010
  Serious: Yes (Hospitalization)
  Sender: FDA-Public Use
  Company Number: US-BAYER-201021157NA

PATIENT
  Sex: Female
  Weight: 81.633 kg

DRUGS (9)
  1. YASMIN [Suspect]
     Indication: ORAL CONTRACEPTION
  2. OCELLA [Suspect]
     Indication: PREMENSTRUAL SYNDROME
     Route: 048
     Dates: start: 20030101
  3. UNCODEABLE ^UNCLASSIFIABLE^ [Concomitant]
     Indication: SUPPLEMENTATION THERAPY
  4. ASCORBIC ACID [Concomitant]
  5. ANTIBIOTICS [Concomitant]
  6. EFFEXOR XR [Concomitant]
     Indication: DEPRESSION
  7. YASMIN [Suspect]
     Indication: PREMENSTRUAL SYNDROME
     Dosage: DAILY DOSE 1 DF
     Route: 048
     Dates: start: 20030101, end: 20050131
  8. EFFEXOR XR [Concomitant]
     Indication: ANXIETY
     Dates: start: 20030101, end: 20050101
  9. NSAID'S [Concomitant]

REACTIONS (4)
  - PULMONARY EMBOLISM [None]
  - DYSPNOEA [None]
  - HAEMOPTYSIS [None]
  - CHEST PAIN [None]
